FAERS Safety Report 9660779 (Version 2)
Quarter: 2013Q4

REPORT INFORMATION
  Report Type: Spontaneous
  Country: SE (occurrence: SE)
  Receive Date: 20131031
  Receipt Date: 20131031
  Transmission Date: 20140711
  Serious: Yes (Other)
  Sender: FDA-Public Use
  Company Number: SE-IPSEN BIOPHARMACEUTICALS, INC.-2013-3445

PATIENT
  Age: 68 Year
  Sex: Female

DRUGS (6)
  1. AZZALURE [Suspect]
     Indication: SKIN WRINKLING
     Dosage: 30 UNITS
     Route: 065
     Dates: start: 20130604, end: 20130604
  2. SUB Q (HYALURONIC ACID) [Suspect]
     Indication: SKIN COSMETIC PROCEDURE
     Route: 065
     Dates: start: 20130625, end: 20130625
  3. RESTYLANE PERLANE [Concomitant]
     Indication: SKIN COSMETIC PROCEDURE
     Route: 065
     Dates: start: 20130604, end: 20130604
  4. TROMBYL [Concomitant]
     Indication: PRODUCT USED FOR UNKNOWN INDICATION
     Dosage: NOT REPORTED
     Route: 065
  5. UNSPECIFIED HYPERTENSIVE MEDICATION [Concomitant]
     Indication: PRODUCT USED FOR UNKNOWN INDICATION
     Dosage: NOT REPORTED
     Route: 065
  6. SIMVASTATIN [Concomitant]
     Indication: PRODUCT USED FOR UNKNOWN INDICATION
     Dosage: NOT REPORTED
     Route: 065

REACTIONS (1)
  - Swelling face [Unknown]
